FAERS Safety Report 7704024-8 (Version None)
Quarter: 2011Q3

REPORT INFORMATION
  Report Type: 
  Country: None (occurrence: None)
  Receive Date: 20110818
  Receipt Date: 20110803
  Transmission Date: 20111222
  Serious: Yes (Other)
  Sender: FDA-Public Use
  Company Number: FK201101568

PATIENT
  Age: 13 Year

DRUGS (3)
  1. CISPLATIN [Suspect]
     Indication: GERM CELL CANCER
     Dosage: 25 MG/M2
  2. IFOSFAMIDE [Suspect]
     Indication: GERM CELL CANCER
     Dosage: 900 MG/M2
  3. ETOPOSIDE [Suspect]
     Dosage: 900 MG/M2

REACTIONS (2)
  - PNEUMONIA [None]
  - BONE MARROW FAILURE [None]
